FAERS Safety Report 6147970-1 (Version None)
Quarter: 2009Q2

REPORT INFORMATION
  Report Type: 
  Country: None (occurrence: None)
  Receive Date: 20090408
  Receipt Date: 20090327
  Transmission Date: 20091009
  Serious: Yes (Hospitalization)
  Sender: FDA-Public Use
  Company Number: CO-ROCHE-624387

PATIENT
  Age: 29 Year
  Sex: Male
  Weight: 70 kg

DRUGS (1)
  1. ROACCUTANE [Suspect]
     Dosage: TAKEN DAILY. 0.8 MG/KG/DAY.
     Route: 048
     Dates: start: 20080701, end: 20090201

REACTIONS (1)
  - LIVER ABSCESS [None]
